FAERS Safety Report 11854743 (Version 2)
Quarter: 2016Q1

REPORT INFORMATION
  Report Type: Spontaneous
  Country: CO (occurrence: CO)
  Receive Date: 20151221
  Receipt Date: 20160229
  Transmission Date: 20160526
  Serious: Yes (Life-Threatening)
  Sender: FDA-Public Use
  Company Number: CO-BEH-2015056843

PATIENT
  Age: 50 Year
  Sex: Male

DRUGS (5)
  1. OMPERAZOLE [Concomitant]
     Active Substance: OMEPRAZOLE
     Indication: PROPHYLAXIS
     Route: 048
     Dates: start: 20151204
  2. SANDOGLOBULIN [Suspect]
     Active Substance: HUMAN IMMUNOGLOBULIN G
     Indication: CHRONIC INFLAMMATORY DEMYELINATING POLYRADICULONEUROPATHY
     Dosage: START DATE ??-SEP-2015
     Route: 042
  3. METHILPREDNISOLONE [Concomitant]
     Indication: INFLAMMATION
     Route: 042
     Dates: start: 20151204
  4. SANDOGLOBULIN [Suspect]
     Active Substance: HUMAN IMMUNOGLOBULIN G
     Dosage: INFUSED DURING 12 HOURS
     Route: 042
     Dates: start: 20151204
  5. ENOXAPARIN [Concomitant]
     Active Substance: ENOXAPARIN
     Indication: PROPHYLAXIS
     Route: 058
     Dates: start: 20151204

REACTIONS (2)
  - Sinus bradycardia [Recovered/Resolved]
  - Sinus bradycardia [Recovered/Resolved]

NARRATIVE: CASE EVENT DATE: 20151204
